FAERS Safety Report 6105825-2 (Version None)
Quarter: 2009Q1

REPORT INFORMATION
  Report Type: 
  Country: None (occurrence: None)
  Receive Date: 20090305
  Receipt Date: 20090305
  Transmission Date: 20090719
  Serious: No
  Sender: FDA-Public Use
  Company Number: None

PATIENT
  Sex: Female

DRUGS (1)
  1. MANTOUX, 5TU, SANOFI PASTEUR [Suspect]
     Indication: TUBERCULOSIS TEST
     Dosage: 0.1ML ONCE INTRADERMA
     Route: 023
     Dates: start: 20090217

REACTIONS (1)
  - RASH MACULOVESICULAR [None]
